FAERS Safety Report 9422012 (Version 2)
Quarter: 2013Q3

REPORT INFORMATION
  Report Type: Spontaneous
  Country: US (occurrence: US)
  Receive Date: 20130726
  Receipt Date: 20130816
  Transmission Date: 20140515
  Serious: Yes (Hospitalization, Other)
  Sender: FDA-Public Use
  Company Number: US-JNJFOC-20130712247

PATIENT
  Sex: Female
  Weight: 47.63 kg

DRUGS (6)
  1. INVEGA [Suspect]
     Indication: BIPOLAR DISORDER
     Route: 048
  2. INVEGA [Suspect]
     Indication: BIPOLAR DISORDER
     Route: 048
  3. INVEGA [Suspect]
     Indication: SCHIZOPHRENIA
     Route: 048
  4. INVEGA [Suspect]
     Indication: SCHIZOPHRENIA
     Route: 048
  5. LORAZEPAM [Suspect]
     Indication: BIPOLAR DISORDER
     Route: 048
  6. LORAZEPAM [Suspect]
     Indication: SCHIZOPHRENIA
     Route: 048

REACTIONS (13)
  - Paralysis [Recovered/Resolved]
  - Activities of daily living impaired [Recovered/Resolved]
  - Chest pain [Unknown]
  - Urinary incontinence [Unknown]
  - Eye movement disorder [Unknown]
  - Crying [Unknown]
  - Myalgia [Unknown]
  - Movement disorder [Unknown]
  - Drug effect decreased [Unknown]
  - Unevaluable event [Recovered/Resolved]
  - Weight decreased [Recovered/Resolved]
  - Vomiting [Recovered/Resolved]
  - Diarrhoea [Recovered/Resolved]
